FAERS Safety Report 4282552-8 (Version None)
Quarter: 2004Q1

REPORT INFORMATION
  Report Type: 
  Country: None (occurrence: None)
  Receive Date: 20040129
  Receipt Date: 20040121
  Transmission Date: 20041129
  Serious: Yes (Hospitalization, Other)
  Sender: FDA-Public Use
  Company Number: 200411629BWH

PATIENT
  Age: 56 Year
  Sex: Female
  Weight: 56.6996 kg

DRUGS (4)
  1. AVELOX [Suspect]
     Indication: CELLULITIS
     Dosage: 400 MG, ONCE, ORAL
     Route: 048
     Dates: start: 20040115
  2. TOPROL-XL [Concomitant]
  3. ZITHROMAX [Concomitant]
  4. BIAXIN [Concomitant]

REACTIONS (7)
  - BLOOD PRESSURE INCREASED [None]
  - DIPLOPIA [None]
  - DIZZINESS [None]
  - HEADACHE [None]
  - HEART RATE INCREASED [None]
  - PALPITATIONS [None]
  - PARAESTHESIA [None]
